FAERS Safety Report 18078796 (Version 1)
Quarter: 2020Q3

REPORT INFORMATION
  Report Type: Spontaneous
  Country: US (occurrence: US)
  Receive Date: 20200727
  Receipt Date: 20200727
  Transmission Date: 20201103
  Serious: No
  Sender: FDA-Public Use
  Company Number: None

PATIENT

DRUGS (2)
  1. CLOZAPINE. [Suspect]
     Active Substance: CLOZAPINE
     Indication: PSYCHOTIC DISORDER
  2. FLUPHENAZINE [Suspect]
     Active Substance: FLUPHENAZINE
     Indication: WEIGHT INCREASED
     Dates: start: 20200106, end: 20200131

REACTIONS (3)
  - Weight increased [None]
  - Sedation [None]
  - Therapy change [None]

NARRATIVE: CASE EVENT DATE: 20200106
